FAERS Safety Report 5830473-9 (Version None)
Quarter: 2008Q3

REPORT INFORMATION
  Report Type: 
  Country: None (occurrence: None)
  Receive Date: 20080801
  Receipt Date: 20070601
  Transmission Date: 20090109
  Serious: No
  Sender: FDA-Public Use
  Company Number: US-BRISTOL-MYERS SQUIBB COMPANY-13801071

PATIENT
  Age: 75 Year
  Sex: Female
  Weight: 54 kg

DRUGS (5)
  1. COUMADIN [Suspect]
     Indication: ATRIAL FIBRILLATION
  2. AVAPRO [Concomitant]
  3. ATENOLOL [Concomitant]
  4. DIGOXIN [Concomitant]
  5. SYNTHROID [Concomitant]

REACTIONS (2)
  - CONTUSION [None]
  - INTERNATIONAL NORMALISED RATIO INCREASED [None]
